FAERS Safety Report 6160055-3 (Version None)
Quarter: 2009Q2

REPORT INFORMATION
  Report Type: 
  Country: None (occurrence: None)
  Receive Date: 20090416
  Receipt Date: 20090330
  Transmission Date: 20091009
  Serious: Yes (Death)
  Sender: FDA-Public Use
  Company Number: 2009EK000021

PATIENT
  Age: 65 Year
  Sex: Male
  Weight: 74.8435 kg

DRUGS (2)
  1. RETAVASE [Suspect]
     Indication: ACUTE MYOCARDIAL INFARCTION
     Dates: start: 20090315, end: 20090315
  2. HEPARIN [Suspect]
     Indication: ACUTE MYOCARDIAL INFARCTION
     Dates: start: 20090315, end: 20090315

REACTIONS (2)
  - CEREBRAL HAEMORRHAGE [None]
  - VISUAL ACUITY REDUCED [None]
